FAERS Safety Report 5752800-3 (Version None)
Quarter: 2008Q2

REPORT INFORMATION
  Report Type: 
  Country: None (occurrence: None)
  Receive Date: 20080529
  Receipt Date: 20080517
  Transmission Date: 20081010
  Serious: Yes (Other)
  Sender: FDA-Public Use
  Company Number: US-PFIZER INC-2008043161

PATIENT
  Sex: Female
  Weight: 60.8 kg

DRUGS (8)
  1. CHANTIX [Interacting]
     Indication: SMOKING CESSATION THERAPY
     Dates: start: 20080512, end: 20080501
  2. PREDNISONE TAB [Suspect]
  3. PROZAC [Interacting]
  4. KLONOPIN [Concomitant]
  5. NEURONTIN [Concomitant]
  6. BACLOFEN [Concomitant]
  7. SEROQUEL [Concomitant]
  8. LORTAB [Concomitant]

REACTIONS (10)
  - ANKLE FRACTURE [None]
  - ARTHRALGIA [None]
  - CHEST PAIN [None]
  - DIABETES MELLITUS [None]
  - DRUG INTERACTION [None]
  - GAIT DISTURBANCE [None]
  - JOINT SWELLING [None]
  - OEDEMA PERIPHERAL [None]
  - PAIN IN EXTREMITY [None]
  - SWELLING FACE [None]
